FAERS Safety Report 12790632 (Version 5)
Quarter: 2016Q4

REPORT INFORMATION
  Report Type: Spontaneous
  Country: US (occurrence: US)
  Receive Date: 20160929
  Receipt Date: 20161130
  Transmission Date: 20170207
  Serious: No
  Sender: FDA-Public Use
  Company Number: US-ALEXION PHARMACEUTICALS INC.-A201607231

PATIENT
  Sex: Male

DRUGS (1)
  1. SOLIRIS [Suspect]
     Active Substance: ECULIZUMAB
     Indication: HAEMOLYTIC URAEMIC SYNDROME
     Dosage: UNK
     Route: 042

REACTIONS (15)
  - Haemoglobin abnormal [Unknown]
  - Mean cell haemoglobin concentration abnormal [Unknown]
  - Mean platelet volume abnormal [Unknown]
  - White blood cell count abnormal [Unknown]
  - Granulocytes abnormal [Unknown]
  - Blood chloride abnormal [Unknown]
  - Blood urea abnormal [Unknown]
  - Blood creatinine abnormal [Unknown]
  - Red blood cell count abnormal [Unknown]
  - Lymphocyte count abnormal [Unknown]
  - Blood magnesium abnormal [Unknown]
  - Blood potassium abnormal [Unknown]
  - Haematocrit abnormal [Unknown]
  - Monocyte count abnormal [Unknown]
  - Red cell distribution width abnormal [Unknown]

NARRATIVE: CASE EVENT DATE: 20160915
